FAERS Safety Report 4644016-9 (Version None)
Quarter: 2005Q2

REPORT INFORMATION
  Report Type: 
  Country: None (occurrence: None)
  Receive Date: 20050425
  Receipt Date: 20050415
  Transmission Date: 20051028
  Serious: Yes (Other)
  Sender: FDA-Public Use
  Company Number: PHBS2005MY05379

PATIENT
  Age: 17 Year
  Sex: Male

DRUGS (4)
  1. PREDNISOLONE [Concomitant]
  2. GLEEVEC [Suspect]
     Indication: ACUTE LYMPHOCYTIC LEUKAEMIA
     Dosage: 800 MG/D
     Route: 065
  3. GLEEVEC [Suspect]
     Dosage: 400 MG/D
     Route: 065
  4. CYCLOSPORINE [Concomitant]

REACTIONS (4)
  - ANAEMIA [None]
  - GRAFT VERSUS HOST DISEASE [None]
  - LEUKAEMIA RECURRENT [None]
  - LEUKOCYTOSIS [None]
